FAERS Safety Report 7084188-2 (Version None)
Quarter: 2010Q4

REPORT INFORMATION
  Report Type: 
  Country: None (occurrence: None)
  Receive Date: 20101104
  Receipt Date: 20101025
  Transmission Date: 20110411
  Serious: Yes (Hospitalization, Other)
  Sender: FDA-Public Use
  Company Number: US-CELGENEUS-163-21880-10091970

PATIENT
  Sex: Male
  Weight: 63.7 kg

DRUGS (22)
  1. REVLIMID [Suspect]
     Indication: MULTIPLE MYELOMA
     Route: 048
     Dates: start: 20100811, end: 20100101
  2. REVLIMID [Suspect]
     Route: 048
     Dates: start: 20100923, end: 20101006
  3. REVLIMID [Suspect]
     Route: 048
     Dates: start: 20101001
  4. DEXAMETHASONE [Concomitant]
     Indication: MULTIPLE MYELOMA
     Route: 048
     Dates: start: 20100811
  5. HYDROCHLOROTHIAZIDE [Concomitant]
     Route: 065
  6. LISINOPRIL [Concomitant]
     Route: 065
  7. PREDNISONE [Concomitant]
     Route: 065
  8. METOPROLOL [Concomitant]
     Indication: HYPERTENSION
     Route: 048
  9. METOPROLOL [Concomitant]
     Route: 048
  10. WARFARIN SODIUM [Concomitant]
     Route: 065
  11. MECLIZINE [Concomitant]
     Route: 065
  12. POTASSIUM CHLORIDE [Concomitant]
     Route: 048
  13. COMPAZINE [Concomitant]
     Indication: NAUSEA
     Route: 048
  14. VICODIN [Concomitant]
     Route: 065
  15. COUMADIN [Concomitant]
     Route: 065
  16. AREDIA [Concomitant]
     Route: 065
  17. ALENDRONATE SODIUM [Concomitant]
     Route: 048
  18. CYANOCOBALAMIN [Concomitant]
     Dosage: 1000 MCG/ML
     Route: 030
  19. SENNA S [Concomitant]
     Route: 048
  20. HYDROCODONE BITARTRATE AND ACETAMINOPHEN [Concomitant]
     Indication: PAIN
     Dosage: 500MG-5MG
     Route: 048
  21. CALCIUM PLUS VITAMIN D [Concomitant]
     Route: 048
  22. VITAMIN D [Concomitant]
     Route: 048

REACTIONS (8)
  - ASTHENIA [None]
  - CONJUNCTIVAL HAEMORRHAGE [None]
  - DIZZINESS [None]
  - FALL [None]
  - FATIGUE [None]
  - FEMUR FRACTURE [None]
  - SKIN HAEMORRHAGE [None]
  - THROMBOCYTOPENIA [None]
